FAERS Safety Report 6036864-8 (Version None)
Quarter: 2009Q1

REPORT INFORMATION
  Report Type: 
  Country: None (occurrence: None)
  Receive Date: 20090114
  Receipt Date: 20090102
  Transmission Date: 20090719
  Serious: Yes (Death)
  Sender: FDA-Public Use
  Company Number: US-PFIZER INC-2007053425

PATIENT
  Sex: Male

DRUGS (7)
  1. SUTENT [Suspect]
     Indication: NON-SMALL CELL LUNG CANCER
     Dates: start: 20070611, end: 20070628
  2. SUTENT [Suspect]
     Indication: METASTASES TO CENTRAL NERVOUS SYSTEM
  3. AVAPRO [Concomitant]
     Dosage: 150 MG, 1X/DAY
  4. NEXIUM [Concomitant]
     Dosage: 40 MG, 1X/DAY
  5. LASIX [Concomitant]
     Dosage: 20 MG, 1X/DAY
  6. LORAZEPAM [Concomitant]
     Dosage: 0.5 MG, 2X/DAY
  7. DECADRON [Concomitant]
     Dosage: 6 MG, 1X/DAY

REACTIONS (1)
  - PULMONARY EMBOLISM [None]
